FAERS Safety Report 16832082 (Version 8)
Quarter: 2025Q3

REPORT INFORMATION
  Report Type: Spontaneous
  Country: EU (occurrence: EU)
  Receive Date: 20190920
  Receipt Date: 20250701
  Transmission Date: 20251021
  Serious: Yes (Death, Hospitalization, Other)
  Sender: AUROBINDO
  Company Number: None

PATIENT
  Age: 90 Year
  Sex: Female

DRUGS (14)
  1. ALENDRONIC ACID [Suspect]
     Active Substance: ALENDRONIC ACID
     Indication: Osteoporosis
     Dosage: 70 MILLIGRAM, EVERY WEEK
     Route: 048
  2. ALLOPURINOL [Suspect]
     Active Substance: ALLOPURINOL
     Indication: Hyperuricaemia
     Dosage: 100 MILLIGRAM, ONCE A DAY
     Route: 048
  3. BISOPROLOL [Suspect]
     Active Substance: BISOPROLOL
     Indication: Atrial fibrillation
     Dosage: 5 MILLIGRAM, ONCE A DAY
     Route: 048
  4. BISOPROLOL [Suspect]
     Active Substance: BISOPROLOL
     Dosage: 5 MILLIGRAM, TWO TIMES A DAY (10 MG, QD)
     Route: 048
  5. ESCITALOPRAM [Suspect]
     Active Substance: ESCITALOPRAM OXALATE
     Indication: Depression
     Dosage: 10 MILLIGRAM, ONCE A DAY
     Route: 048
  6. FUROSEMIDE [Suspect]
     Active Substance: FUROSEMIDE
     Indication: Cardiac failure congestive
     Dosage: 60 MILLIGRAM, ONCE A DAY
     Route: 048
  7. OMEPRAZOLE [Suspect]
     Active Substance: OMEPRAZOLE
     Indication: Oesophagitis
     Dosage: 20 MILLIGRAM, ONCE A DAY
     Route: 048
  8. ATROVENT [Suspect]
     Active Substance: IPRATROPIUM BROMIDE
     Indication: Chronic obstructive pulmonary disease
     Dosage: 2 DOSAGE FORM, 3 TIMES A DAY (2 INH EVERY 8 HOURS INHALATED )
     Route: 055
  9. SPIRONOLACTONE [Suspect]
     Active Substance: SPIRONOLACTONE
     Indication: Hypertension
     Dosage: 50 MILLIGRAM, ONCE A DAY
     Route: 048
  10. FERROUS SULFATE [Suspect]
     Active Substance: FERROUS SULFATE
     Indication: Iron deficiency
     Dosage: 256.3 MILLIGRAM, ONCE A DAY
     Route: 048
  11. IPRATROPIUM BROMIDE [Suspect]
     Active Substance: IPRATROPIUM BROMIDE
     Indication: Chronic obstructive pulmonary disease
     Dosage: 2 DOSAGE FORM, 3 TIMES A DAY(2 INH EVERY 8 HOURS INHALATED)
     Route: 055
  12. LISINOPRIL [Suspect]
     Active Substance: LISINOPRIL
     Indication: Hypertension
     Dosage: 5 MILLIGRAM, ONCE A DAY
     Route: 048
  13. SINTROM [Suspect]
     Active Substance: ACENOCOUMAROL
     Indication: Atrial fibrillation
     Dosage: 1 MILLIGRAM, ONCE A DAY (60 TABLETS)
     Route: 048
  14. SPIRONOLACTONE [Suspect]
     Active Substance: SPIRONOLACTONE
     Indication: Hypertension
     Dosage: 50 MILLIGRAM, ONCE A DAY
     Route: 048

REACTIONS (16)
  - Respiratory tract infection [Fatal]
  - Cardiac failure [Fatal]
  - Pneumonia [Fatal]
  - Amaurosis [Fatal]
  - Urinary retention [Fatal]
  - Neuromyelitis optica spectrum disorder [Fatal]
  - Muscular weakness [Fatal]
  - Extensor plantar response [Fatal]
  - Sight disability [Fatal]
  - Multimorbidity [Fatal]
  - Hypoaesthesia [Fatal]
  - Thermohypoaesthesia [Fatal]
  - Hyperreflexia [Fatal]
  - Pupillary reflex impaired [Fatal]
  - Optic ischaemic neuropathy [Fatal]
  - Respiratory failure [Fatal]

NARRATIVE: CASE EVENT DATE: 20150813
